FAERS Safety Report 8186175-X (Version None)
Quarter: 2012Q1

REPORT INFORMATION
  Report Type: 
  Country: None (occurrence: None)
  Receive Date: 20120306
  Receipt Date: 20120302
  Transmission Date: 20120608
  Serious: Yes (Other)
  Sender: FDA-Public Use
  Company Number: US-PFIZER INC-2012057176

PATIENT
  Sex: Male
  Weight: 136 kg

DRUGS (1)
  1. VIAGRA [Suspect]
     Indication: PENIS DISORDER
     Dosage: 10 MG, DAILY
     Route: 048
     Dates: start: 20120201

REACTIONS (1)
  - DIARRHOEA [None]
